FAERS Safety Report 9931847 (Version 2)
Quarter: 2014Q1

REPORT INFORMATION
  Report Type: Spontaneous
  Country: US (occurrence: US)
  Receive Date: 20140228
  Receipt Date: 20140228
  Transmission Date: 20141002
  Serious: Yes (Other)
  Sender: FDA-Public Use
  Company Number: US-BEH-2012031846

PATIENT
  Age: 47 Year
  Sex: Female
  Weight: 54 kg

DRUGS (45)
  1. ZEMAIRA [Suspect]
     Indication: ENDOCRINE NEOPLASM
     Route: 042
     Dates: start: 20120307
  2. ZEMAIRA [Suspect]
     Indication: ALPHA-1 ANTI-TRYPSIN DEFICIENCY
     Dosage: 4.4 ML/MIN
     Route: 042
     Dates: start: 20120327
  3. ZEMAIRA [Suspect]
     Dosage: 972 MG/VIAL
     Route: 042
  4. CYMBALTA [Concomitant]
  5. OXYCODONE [Concomitant]
  6. LACTULOSE [Concomitant]
  7. PROMETHAZINE [Concomitant]
  8. GABAPENTIN [Concomitant]
  9. BETAMETHASONE [Concomitant]
  10. BACLOFEN [Concomitant]
  11. ADVAIR [Concomitant]
  12. ALBUTEROL [Concomitant]
  13. PROAIR [Concomitant]
  14. OXYGEN [Concomitant]
  15. TRAMADOL [Concomitant]
  16. DIPHENHYDRAMINE [Concomitant]
  17. HEPARIN [Concomitant]
  18. NORMAL SALINE [Concomitant]
  19. SODIUM CHLORIDE [Concomitant]
  20. EPI-PEN [Concomitant]
  21. LMX [Concomitant]
  22. SINGULAIR [Concomitant]
  23. FLOVENT [Concomitant]
  24. ALPHA LIPOIC ACID [Concomitant]
  25. MILK THISTLE [Concomitant]
  26. MS CONTIN [Concomitant]
  27. GINKO BILOBA [Concomitant]
  28. OMEGA 3 6 9 COMPLEX [Concomitant]
  29. MUCINEX DM [Concomitant]
  30. AZO STANDARD [Concomitant]
  31. ESTROVEN ENERGY [Concomitant]
  32. FLAGYL [Concomitant]
  33. NAPROXEN [Concomitant]
  34. METHOCARBAMOL [Concomitant]
  35. DOXYCYCLINE HYCLATE [Concomitant]
  36. LEVAQUIN [Concomitant]
  37. OXYCODONE [Concomitant]
  38. OPANA ER [Concomitant]
  39. LEVOFLOXACIN [Concomitant]
  40. ZITHROMAX [Concomitant]
  41. LIDODERM PATCH [Concomitant]
     Route: 062
  42. TRAZODONE [Concomitant]
  43. PREDNISONE [Concomitant]
  44. DIPHENOXYLATE-ATROPINE [Concomitant]
  45. TUDORZA [Concomitant]

REACTIONS (8)
  - Neurological symptom [Unknown]
  - Sluggishness [Unknown]
  - Pupils unequal [Unknown]
  - Headache [Unknown]
  - Lethargy [Recovered/Resolved]
  - Fatigue [Recovered/Resolved]
  - Dysarthria [Unknown]
  - Off label use [Unknown]
